FAERS Safety Report 4270560-2 (Version None)
Quarter: 2004Q1

REPORT INFORMATION
  Report Type: 
  Country: None (occurrence: None)
  Receive Date: 20040113
  Receipt Date: 20040113
  Transmission Date: 20041129
  Serious: Yes (Other)
  Sender: FDA-Public Use
  Company Number: None

PATIENT
  Age: 52 Year
  Sex: Male
  Weight: 91.8 kg

DRUGS (1)
  1. ARIPIPRAZOLE 10 MG OTSUKA [Suspect]
     Indication: SCHIZOPHRENIA
     Dosage: 10MG DAILY ORAL
     Route: 048
     Dates: start: 20030918, end: 20030925

REACTIONS (2)
  - ABNORMAL BEHAVIOUR [None]
  - MANIA [None]
